FAERS Safety Report 7245569-7 (Version None)
Quarter: 2011Q1

REPORT INFORMATION
  Report Type: 
  Country: None (occurrence: None)
  Receive Date: 20110126
  Receipt Date: 20110110
  Transmission Date: 20110831
  Serious: Yes (Other)
  Sender: FDA-Public Use
  Company Number: PHHO2010TR16778

PATIENT
  Sex: Female
  Weight: 72 kg

DRUGS (2)
  1. FTY 720 [Suspect]
     Dosage: UNKNOWN
     Route: 048
     Dates: start: 20100527
  2. FTY 720 [Suspect]
     Indication: MULTIPLE SCLEROSIS
     Dosage: DOSE BLINDED
     Route: 048
     Dates: start: 20080826, end: 20100526

REACTIONS (4)
  - PAPILLOMA VIRAL INFECTION [None]
  - ANOGENITAL WARTS [None]
  - RASH [None]
  - PRURITUS GENITAL [None]
